FAERS Safety Report 6368229-3 (Version None)
Quarter: 2009Q3

REPORT INFORMATION
  Report Type: 
  Country: None (occurrence: None)
  Receive Date: 20090922
  Receipt Date: 20090921
  Transmission Date: 20100115
  Serious: Yes (Death)
  Sender: FDA-Public Use
  Company Number: IT-BRISTOL-MYERS SQUIBB COMPANY-14646897

PATIENT
  Age: 83 Year
  Sex: Male

DRUGS (1)
  1. COUMADIN [Suspect]
     Indication: ARRHYTHMIA
     Dosage: DRUG INTERRUPTED ON AN UNKNOWN DATE
     Route: 048
     Dates: start: 20040101

REACTIONS (5)
  - CEREBRAL HAEMATOMA [None]
  - CEREBRAL INFARCTION [None]
  - HEAD INJURY [None]
  - SUBARACHNOID HAEMORRHAGE [None]
  - SYNCOPE [None]
